FAERS Safety Report 9868700 (Version 4)
Quarter: 2014Q3

REPORT INFORMATION
  Report Type: Spontaneous
  Country: US (occurrence: US)
  Receive Date: 20140204
  Receipt Date: 20140930
  Transmission Date: 20150326
  Serious: Yes (Hospitalization, Other)
  Sender: FDA-Public Use
  Company Number: US-009507513-1402USA001305

PATIENT
  Sex: Female
  Weight: 86.17 kg

DRUGS (2)
  1. ORTHO-NOVUM [Suspect]
     Active Substance: ETHINYL ESTRADIOL\NORETHINDRONE
     Indication: DYSFUNCTIONAL UTERINE BLEEDING
     Dosage: 1-35 MG-MCG, QD, PRN
     Route: 048
     Dates: start: 20060411
  2. NUVARING [Suspect]
     Active Substance: ETHINYL ESTRADIOL\ETONOGESTREL
     Indication: DYSFUNCTIONAL UTERINE BLEEDING
     Dosage: 0.12-0.015 MG/24 HR
     Route: 067
     Dates: start: 20070713

REACTIONS (6)
  - Deep vein thrombosis [Unknown]
  - Off label use [Unknown]
  - Coagulopathy [Unknown]
  - Pulmonary embolism [Unknown]
  - Protein C deficiency [Unknown]
  - Sinus tachycardia [None]

NARRATIVE: CASE EVENT DATE: 20070713
